FAERS Safety Report 9914335 (Version 1)
Quarter: 2014Q1

REPORT INFORMATION
  Report Type: Spontaneous
  Country: FR (occurrence: None)
  Receive Date: 20140218
  Receipt Date: 20140218
  Transmission Date: 20141002
  Serious: Yes (Hospitalization, Other)
  Sender: FDA-Public Use
  Company Number: AUR-APL-2014-01484

PATIENT
  Age: 90 Year
  Sex: Female

DRUGS (6)
  1. BISOPROLOL [Suspect]
     Indication: PRODUCT USED FOR UNKNOWN INDICATION
     Route: 048
  2. EFFEXOR (VENLAFAXINE HYDROCHLORIDE) UNKNOWN [Suspect]
     Indication: DEPRESSION
     Route: 048
     Dates: start: 201304, end: 20140113
  3. PANTOPRAZOLE (PANTOPRAZOLE) [Suspect]
     Indication: OESOPHAGITIS
     Route: 048
     Dates: start: 2010, end: 20140113
  4. PLAVIX (CLOPIDOGREL BISULFATE) (CLOPIDOGREL BISULFATE) [Suspect]
     Indication: TRANSIENT ISCHAEMIC ATTACK
     Route: 048
     Dates: end: 20140113
  5. CORTANCYL [Suspect]
     Indication: POLYMYALGIA RHEUMATICA
     Route: 048
     Dates: start: 201305, end: 20140113
  6. ATARAX (HYDROXYZINE HYDROCHLORIDE) [Suspect]
     Indication: SLEEP DISORDER
     Route: 048
     Dates: end: 20140116

REACTIONS (3)
  - Faecal vomiting [None]
  - Pancreatitis acute [None]
  - Mallory-Weiss syndrome [None]
